FAERS Safety Report 11049473 (Version 2)
Quarter: 2015Q2

REPORT INFORMATION
  Report Type: Spontaneous
  Country: US (occurrence: US)
  Receive Date: 20150420
  Receipt Date: 20150519
  Transmission Date: 20150821
  Serious: Yes (Hospitalization)
  Sender: FDA-Public Use
  Company Number: US-B.I. PHARMACEUTICALS,INC./RIDGEFIELD-2015-BI-20007BP

PATIENT
  Age: 82 Year
  Sex: Female
  Weight: 51 kg

DRUGS (2)
  1. ADVAIR HFA [Concomitant]
     Active Substance: FLUTICASONE PROPIONATE\SALMETEROL XINAFOATE
     Indication: CHRONIC OBSTRUCTIVE PULMONARY DISEASE
     Dosage: 1 PUF
     Route: 055
     Dates: start: 20150409
  2. ATROVENT [Suspect]
     Active Substance: IPRATROPIUM BROMIDE
     Indication: PERTUSSIS
     Dosage: 68 MCG
     Route: 055
     Dates: start: 2010

REACTIONS (10)
  - Vision blurred [Not Recovered/Not Resolved]
  - Hip fracture [Recovered/Resolved]
  - Dizziness [Recovered/Resolved]
  - Cataract [Not Recovered/Not Resolved]
  - Fall [Recovered/Resolved]
  - Off label use [Unknown]
  - Cataract [Not Recovered/Not Resolved]
  - Arthritis [Not Recovered/Not Resolved]
  - Femur fracture [Recovered/Resolved]
  - Product quality issue [Recovered/Resolved]

NARRATIVE: CASE EVENT DATE: 2010
